FAERS Safety Report 13888737 (Version 1)
Quarter: 2017Q3

REPORT INFORMATION
  Report Type: Spontaneous
  Country: US (occurrence: US)
  Receive Date: 20170816
  Receipt Date: 20170816
  Transmission Date: 20171127
  Serious: No
  Sender: FDA-Public Use
  Company Number: None

PATIENT
  Sex: Female
  Weight: 22.5 kg

DRUGS (1)
  1. EUCRISA [Suspect]
     Active Substance: CRISABOROLE
     Indication: RASH
     Dosage: ?          QUANTITY:1 2 TIMES CREAM;?TWICE A DAY TOPICAL
     Route: 061
     Dates: start: 20170725, end: 20170814

REACTIONS (3)
  - Economic problem [None]
  - Pruritus [None]
  - Application site rash [None]

NARRATIVE: CASE EVENT DATE: 20170808
